FAERS Safety Report 6940460-5 (Version None)
Quarter: 2010Q3

REPORT INFORMATION
  Report Type: 
  Country: None (occurrence: None)
  Receive Date: 20100820
  Receipt Date: 20100805
  Transmission Date: 20110219
  Serious: Yes (Other)
  Sender: FDA-Public Use
  Company Number: AUR-APL-2010-01674

PATIENT
  Age: 56 Year
  Sex: Male
  Weight: 90.7 kg

DRUGS (11)
  1. METFORMIN [Suspect]
     Indication: DIABETES MELLITUS
     Dosage: 4000MG, DAILY,
     Dates: start: 20011101, end: 20040101
  2. GABAPENTIN [Suspect]
     Indication: NEUROPATHY PERIPHERAL
     Dosage: 800MG, QID, ORAL
     Route: 048
     Dates: start: 20100101
  3. NEURONTIN [Suspect]
     Indication: NEUROPATHY PERIPHERAL
     Dosage: 600MG, BID, ORAL
     Route: 048
     Dates: start: 20011101
  4. FENTANYL CITRATE [Suspect]
     Indication: NEUROPATHY PERIPHERAL
     Dosage: 0.25MG, Q3D, TRANSDERMAL
     Route: 062
  5. KEFLEX CAPSULE [Suspect]
     Indication: SINUSITIS
     Dosage: 500MG, TID, ORAL
     Route: 048
  6. VICODIN [Suspect]
     Indication: NEUROPATHY PERIPHERAL
     Dosage: 10/650MG, 1.5 TAB TID, ORAL
     Route: 048
  7. LANTUS [Concomitant]
  8. HUMALOG [Concomitant]
  9. FLUTICASONE PROPIONATE [Concomitant]
  10. ASPIRIN [Concomitant]
  11. NITROGLYCERIN [Concomitant]

REACTIONS (11)
  - ABDOMINAL PAIN UPPER [None]
  - ABNORMAL BEHAVIOUR [None]
  - AMNESIA [None]
  - CONSTIPATION [None]
  - DRUG INEFFECTIVE [None]
  - DYSURIA [None]
  - FATIGUE [None]
  - HAND FRACTURE [None]
  - LIVER DISORDER [None]
  - MOOD ALTERED [None]
  - SOMNOLENCE [None]
